FAERS Safety Report 13615151 (Version 4)
Quarter: 2017Q2

REPORT INFORMATION
  Report Type: Report from Study
  Country: None (occurrence: BR)
  Receive Date: 20170606
  Receipt Date: 20170621
  Transmission Date: 20170830
  Serious: Yes (Other)
  Sender: FDA-Public Use
  Company Number: BR-ABBVIE-17K-020-1996499-00

PATIENT
  Age: 57 Year
  Sex: Male
  Weight: 91 kg

DRUGS (4)
  1. FISH OIL [Concomitant]
     Active Substance: FISH OIL
     Indication: ARTHROPATHY
  2. HUMIRA [Suspect]
     Active Substance: ADALIMUMAB
     Indication: PSORIATIC ARTHROPATHY
     Route: 058
     Dates: start: 20130901
  3. FISH OIL [Concomitant]
     Active Substance: FISH OIL
     Indication: PROPHYLAXIS
  4. FISH OIL [Concomitant]
     Active Substance: FISH OIL
     Indication: ARTERIAL DISORDER
     Route: 048

REACTIONS (6)
  - Vitamin D decreased [Not Recovered/Not Resolved]
  - Weight loss poor [Unknown]
  - Drug ineffective [Unknown]
  - Obesity [Recovered/Resolved]
  - Muscular weakness [Unknown]
  - Pain [Unknown]

NARRATIVE: CASE EVENT DATE: 201507
